FAERS Safety Report 4726133-8 (Version None)
Quarter: 2005Q3

REPORT INFORMATION
  Report Type: 
  Country: None (occurrence: None)
  Receive Date: 20050725
  Receipt Date: 20050725
  Transmission Date: 20060218
  Serious: Yes (Hospitalization)
  Sender: FDA-Public Use
  Company Number: None

PATIENT
  Age: 58 Year
  Sex: Female

DRUGS (17)
  1. GLEEVEC [Suspect]
     Indication: NON-SMALL CELL LUNG CANCER
     Dosage: 600 MG DAILY PO
     Route: 048
     Dates: start: 20050518, end: 20050720
  2. TAXOTERE [Suspect]
     Indication: NON-SMALL CELL LUNG CANCER
     Dosage: 42 MG WEEKLY IV
     Route: 042
     Dates: start: 20050518, end: 20050713
  3. MS CONTIN [Concomitant]
  4. ZYPREXA [Concomitant]
  5. EFFEXOR [Concomitant]
  6. DIAZEPAM [Concomitant]
  7. ESTER-C [Concomitant]
  8. BUPROPION [Concomitant]
  9. HYOSCYAMINE [Concomitant]
  10. POTASSIUM CHLORIDE [Concomitant]
  11. NAPROSYN [Concomitant]
  12. ASPIRIN [Concomitant]
  13. ALBUTEROL [Concomitant]
  14. ATROVENT [Concomitant]
  15. ADVAIR DISKUS 100/50 [Concomitant]
  16. BENSOATE [Concomitant]
  17. PROTONIX [Concomitant]

REACTIONS (1)
  - ANGIONEUROTIC OEDEMA [None]
